FAERS Safety Report 23080919 (Version 1)
Quarter: 2023Q4

REPORT INFORMATION
  Report Type: Spontaneous
  Country: US (occurrence: US)
  Receive Date: 20231018
  Receipt Date: 20231018
  Transmission Date: 20240109
  Serious: Yes (Other)
  Sender: FDA-Public Use
  Company Number: US-BRACCO-2022US05640

PATIENT
  Age: 41 Year
  Sex: Female

DRUGS (1)
  1. PROHANCE [Suspect]
     Active Substance: GADOTERIDOL
     Indication: Magnetic resonance imaging head
     Dosage: 15 ML, SINGLE
     Dates: start: 20220524, end: 20220524

REACTIONS (5)
  - Anaphylactic reaction [Recovered/Resolved]
  - Blood pressure increased [Unknown]
  - Anxiety [Recovered/Resolved]
  - Tremor [Recovered/Resolved]
  - Oedema peripheral [Unknown]

NARRATIVE: CASE EVENT DATE: 20220524
